FAERS Safety Report 8963024 (Version 2)
Quarter: 2012Q4

REPORT INFORMATION
  Report Type: 
  Country: GR (occurrence: GR)
  Receive Date: 20121213
  Receipt Date: 20121219
  Transmission Date: 20130627
  Serious: Yes (Other)
  Sender: FDA-Public Use
  Company Number: GR-PFIZER INC-2012311172

PATIENT
  Age: 67 Year
  Sex: Male

DRUGS (4)
  1. ESTRACYT [Suspect]
     Indication: PROSTATE CANCER
     Dosage: UNK
     Route: 048
  2. ZANTAC [Concomitant]
     Indication: GASTROINTESTINAL DISORDER NOS
     Dosage: UNK
     Route: 048
  3. COPALIA [Concomitant]
     Indication: HYPERTENSION
     Dosage: UNK
     Route: 048
  4. CORTIZONE [Concomitant]
     Dosage: UNK

REACTIONS (2)
  - Prostatic specific antigen increased [Not Recovered/Not Resolved]
  - Incorrect storage of drug [Unknown]
